FAERS Safety Report 7990981-1 (Version None)
Quarter: 2011Q4

REPORT INFORMATION
  Report Type: 
  Country: None (occurrence: None)
  Receive Date: 20111219
  Receipt Date: 20111212
  Transmission Date: 20120403
  Serious: Yes (Death)
  Sender: FDA-Public Use
  Company Number: US-ROCHE-1021515

PATIENT
  Sex: Male
  Weight: 92.5 kg

DRUGS (3)
  1. OXALIPLATIN [Suspect]
     Indication: OESOPHAGEAL ADENOCARCINOMA
     Route: 042
     Dates: start: 20111209
  2. XELODA [Suspect]
     Indication: OESOPHAGEAL ADENOCARCINOMA
     Route: 048
     Dates: start: 20111209
  3. AVASTIN [Suspect]
     Indication: OESOPHAGEAL ADENOCARCINOMA
     Route: 042
     Dates: start: 20111209

REACTIONS (1)
  - DEATH [None]
